FAERS Safety Report 6718385-X (Version None)
Quarter: 2010Q2

REPORT INFORMATION
  Report Type: 
  Country: None (occurrence: None)
  Receive Date: 20100510
  Receipt Date: 20100505
  Transmission Date: 20101027
  Serious: Yes (Death, Hospitalization)
  Sender: FDA-Public Use
  Company Number: FI-ROCHE-621592

PATIENT
  Age: 62 Year
  Sex: Male

DRUGS (7)
  1. VALCYTE [Suspect]
     Dosage: 2 TABLETS TWO TIMES A DAY = 1800 MG
     Route: 048
     Dates: start: 20090330, end: 20090416
  2. MABTHERA [Suspect]
     Dosage: DOSAGE: 375 MG/M2 FOLLOWED BY 500 MG/M2; FORM: INFUSION
     Route: 042
     Dates: start: 20081201, end: 20090301
  3. MABTHERA [Suspect]
     Route: 042
     Dates: start: 20100201
  4. FLUDARABINE PHOSPHATE [Concomitant]
     Dates: start: 20081201, end: 20090108
  5. CYCLOPHOSPHAMIDE [Concomitant]
     Dates: start: 20081201, end: 20090108
  6. BENDAMUSTINE [Concomitant]
     Dates: start: 20090201, end: 20090301
  7. MABCAMPATH [Concomitant]
     Route: 058
     Dates: start: 20090301, end: 20090601

REACTIONS (13)
  - ANAEMIA [None]
  - ANAEMIA HAEMOLYTIC AUTOIMMUNE [None]
  - BONE MARROW DISORDER [None]
  - BONE MARROW FAILURE [None]
  - CLOSTRIDIUM DIFFICILE COLITIS [None]
  - FEBRILE NEUTROPENIA [None]
  - INFECTION [None]
  - LEUKOPENIA [None]
  - MESENTERIC VEIN THROMBOSIS [None]
  - NAUSEA [None]
  - NEUTROPENIA [None]
  - PYREXIA [None]
  - SERUM FERRITIN INCREASED [None]
